FAERS Safety Report 12722196 (Version 1)
Quarter: 2016Q3

REPORT INFORMATION
  Report Type: Spontaneous
  Country: AU (occurrence: AU)
  Receive Date: 20160907
  Receipt Date: 20160907
  Transmission Date: 20161109
  Serious: Yes (Death, Other)
  Sender: FDA-Public Use
  Company Number: AU-PFIZER INC-2011108223

PATIENT
  Age: 21 Year
  Sex: Male

DRUGS (10)
  1. CODEINE [Interacting]
     Active Substance: CODEINE
  2. METHAMPHETAMINE [Interacting]
     Active Substance: METHAMPHETAMINE
  3. KETAMINE HCL [Interacting]
     Active Substance: KETAMINE HYDROCHLORIDE
  4. TEMAZEPAM. [Interacting]
     Active Substance: TEMAZEPAM
  5. METHYLENEDIOXYMETHAMPHETAMINE [Interacting]
     Active Substance: METHYLENEDIOXYMETHAMPHETAMINE
  6. SERTRALINE HCL [Interacting]
     Active Substance: SERTRALINE HYDROCHLORIDE
  7. DIAZEPAM. [Interacting]
     Active Substance: DIAZEPAM
  8. MORPHINE SULFATE. [Suspect]
     Active Substance: MORPHINE SULFATE
  9. AMFETAMINE SULFATE [Interacting]
     Active Substance: AMPHETAMINE SULFATE
  10. FLUOXETINE [Suspect]
     Active Substance: FLUOXETINE HYDROCHLORIDE

REACTIONS (3)
  - Pulmonary oedema [Unknown]
  - Drug interaction [Unknown]
  - Toxicity to various agents [Fatal]
